FAERS Safety Report 7843000-1 (Version None)
Quarter: 2011Q4

REPORT INFORMATION
  Report Type: 
  Country: None (occurrence: None)
  Receive Date: 20111025
  Receipt Date: 20111013
  Transmission Date: 20120403
  Serious: Yes (Hospitalization)
  Sender: FDA-Public Use
  Company Number: US-NOVOPROD-337208

PATIENT

DRUGS (8)
  1. LEVOTHYROXINE SODIUM [Concomitant]
     Indication: THYROID DISORDER
     Dosage: UNKNOWN
  2. NOVOLOG [Suspect]
     Indication: TYPE 2 DIABETES MELLITUS
     Dosage: 10 U, QD (8 UNITS PLUS 2 SLIDING SCALE)
     Route: 058
     Dates: start: 20110101
  3. CORDARONE [Concomitant]
     Indication: CARDIAC DISORDER
     Dosage: UNKNOWN
  4. BUSPIRONE [Concomitant]
     Indication: ANXIETY
     Dosage: 15 MG, UNK
  5. LOVASTATIN [Concomitant]
     Indication: PRODUCT USED FOR UNKNOWN INDICATION
     Dosage: UNKNOWN
  6. WARFARIN SODIUM [Concomitant]
     Indication: ANTICOAGULANT THERAPY
     Dosage: UNKNOWN
  7. METOPROLOL                         /00376902/ [Concomitant]
     Indication: CARDIAC DISORDER
     Dosage: UNK
  8. LANTUS [Concomitant]
     Indication: TYPE 2 DIABETES MELLITUS
     Dosage: 27 U, QD
     Route: 058
     Dates: start: 20110903

REACTIONS (4)
  - BLOOD PRESSURE INCREASED [None]
  - CHEST PAIN [None]
  - BLOOD GLUCOSE INCREASED [None]
  - HIATUS HERNIA [None]
